FAERS Safety Report 13748697 (Version 1)
Quarter: 2017Q3

REPORT INFORMATION
  Report Type: Spontaneous
  Country: US (occurrence: US)
  Receive Date: 20170712
  Receipt Date: 20170712
  Transmission Date: 20171127
  Serious: No
  Sender: FDA-Public Use
  Company Number: None

PATIENT
  Age: 56 Year
  Sex: Female

DRUGS (1)
  1. VANCOMYCIN 1000MG FRESENIUS [Suspect]
     Active Substance: VANCOMYCIN
     Indication: POST PROCEDURAL INFECTION
     Route: 042
     Dates: start: 20170626, end: 20170711

REACTIONS (1)
  - Urticaria [None]

NARRATIVE: CASE EVENT DATE: 20170711
